FAERS Safety Report 8192324-X (Version None)
Quarter: 2012Q1

REPORT INFORMATION
  Report Type: 
  Country: None (occurrence: None)
  Receive Date: 20120307
  Receipt Date: 20120227
  Transmission Date: 20120608
  Serious: Yes (Other)
  Sender: FDA-Public Use
  Company Number: US-ASTRAZENECA-2011SE66486

PATIENT
  Age: 78 Year
  Sex: Female

DRUGS (1)
  1. SYMBICORT [Suspect]
     Dosage: 160/4.5 MCG UNKNOWN
     Route: 055

REACTIONS (9)
  - RIB FRACTURE [None]
  - APHASIA [None]
  - CHRONIC OBSTRUCTIVE PULMONARY DISEASE [None]
  - CEREBROVASCULAR ACCIDENT [None]
  - ACCIDENT [None]
  - FALL [None]
  - HYPOKINESIA [None]
  - MENTAL IMPAIRMENT [None]
  - CAROTID ARTERY DISEASE [None]
